FAERS Safety Report 4457590-2 (Version None)
Quarter: 2004Q3

REPORT INFORMATION
  Report Type: 
  Country: None (occurrence: None)
  Receive Date: 20040921
  Receipt Date: 20040802
  Transmission Date: 20050211
  Serious: Yes (Other)
  Sender: FDA-Public Use
  Company Number: WAES 0409USA01185

PATIENT
  Age: 63 Year
  Sex: Male

DRUGS (1)
  1. COZAAR [Suspect]
     Indication: HYPERTENSION
     Dosage: 25 MG/DAILY
     Route: 048
     Dates: start: 20000727

REACTIONS (3)
  - CHEST PAIN [None]
  - HYPERCHOLESTEROLAEMIA [None]
  - RHABDOMYOLYSIS [None]
